FAERS Safety Report 11651515 (Version 1)
Quarter: 2015Q4

REPORT INFORMATION
  Report Type: Spontaneous
  Country: US (occurrence: None)
  Receive Date: 20151021
  Receipt Date: 20151021
  Transmission Date: 20160304
  Serious: Yes (Death)
  Sender: FDA-Public Use
  Company Number: None

PATIENT
  Age: 26 Year
  Sex: Female
  Weight: 129.28 kg

DRUGS (2)
  1. LORYNA [Suspect]
     Active Substance: DROSPIRENONE\ETHINYL ESTRADIOL
     Indication: HORMONE LEVEL ABNORMAL
     Dosage: 1 PILL
     Route: 048
     Dates: start: 20110909, end: 20150121
  2. ALDACTONE [Concomitant]
     Active Substance: SPIRONOLACTONE

REACTIONS (2)
  - Pulmonary thrombosis [None]
  - Obesity [None]

NARRATIVE: CASE EVENT DATE: 20150122
